FAERS Safety Report 11931372 (Version 1)
Quarter: 2016Q1

REPORT INFORMATION
  Report Type: Spontaneous
  Country: US (occurrence: US)
  Receive Date: 20160120
  Receipt Date: 20160120
  Transmission Date: 20160526
  Serious: No
  Sender: FDA-Public Use
  Company Number: US-INCYTE CORPORATION-2015IN004296

PATIENT
  Age: 74 Year
  Sex: Female
  Weight: 63.04 kg

DRUGS (2)
  1. JAKAFI [Suspect]
     Active Substance: RUXOLITINIB
     Indication: POLYCYTHAEMIA VERA
     Dosage: 10 MG, BID (1 TAB Q12 HOURS)
     Route: 048
     Dates: start: 20150605
  2. JAKAFI [Suspect]
     Active Substance: RUXOLITINIB
     Dosage: UNK
     Dates: start: 20150515, end: 20151005

REACTIONS (1)
  - Aura [Recovered/Resolved]

NARRATIVE: CASE EVENT DATE: 20150827
